FAERS Safety Report 15307153 (Version 1)
Quarter: 2018Q3

REPORT INFORMATION
  Report Type: Spontaneous
  Country: RO (occurrence: RO)
  Receive Date: 20180822
  Receipt Date: 20180822
  Transmission Date: 20181010
  Serious: Yes (Other)
  Sender: FDA-Public Use
  Company Number: RO-LANNETT COMPANY, INC.-RO-2018LAN000962

PATIENT
  Age: 58 Year
  Sex: Male

DRUGS (7)
  1. TACROLIMUS. [Suspect]
     Active Substance: TACROLIMUS
     Indication: IMMUNOSUPPRESSION
     Dosage: UNK
     Route: 065
  2. PREDNISONE. [Concomitant]
     Active Substance: PREDNISONE
     Indication: IMMUNOSUPPRESSION
     Dosage: UNK
     Route: 065
  3. LOPINAVIR AND RITONAVIR [Suspect]
     Active Substance: LOPINAVIR\RITONAVIR
     Indication: ANTIVIRAL TREATMENT
     Dosage: UNK
     Route: 065
  4. DASABUVIR [Suspect]
     Active Substance: DASABUVIR
     Indication: ANTIVIRAL TREATMENT
     Dosage: UNK
     Route: 065
  5. MYCOPHENOLATE MOFETIL. [Concomitant]
     Active Substance: MYCOPHENOLATE MOFETIL
     Indication: IMMUNOSUPPRESSION
     Dosage: UNK
     Route: 065
  6. OMBITASVIR [Suspect]
     Active Substance: OMBITASVIR
     Indication: ANTIVIRAL TREATMENT
     Dosage: UNK
     Route: 065
  7. PARITAPREVIR [Suspect]
     Active Substance: PARITAPREVIR
     Indication: ANTIVIRAL TREATMENT
     Dosage: UNK
     Route: 065

REACTIONS (5)
  - Hyponatraemia [Recovered/Resolved]
  - Inappropriate antidiuretic hormone secretion [Recovered/Resolved]
  - Neurological symptom [Recovered/Resolved]
  - Drug interaction [Recovered/Resolved]
  - Drug level increased [Recovered/Resolved]
